FAERS Safety Report 7324608-9 (Version None)
Quarter: 2011Q1

REPORT INFORMATION
  Report Type: 
  Country: None (occurrence: None)
  Receive Date: 20110209
  Receipt Date: 20110111
  Transmission Date: 20110831
  Serious: No
  Sender: FDA-Public Use
  Company Number: 2010000076

PATIENT
  Age: 2 Year
  Sex: Female

DRUGS (1)
  1. ULESFIA [Suspect]
     Dates: start: 20100101

REACTIONS (4)
  - APPLICATION SITE IRRITATION [None]
  - URTICARIA [None]
  - APPLICATION SITE PAIN [None]
  - APPLICATION SITE ERYTHEMA [None]
